FAERS Safety Report 8169373-0 (Version None)
Quarter: 2012Q1

REPORT INFORMATION
  Report Type: 
  Country: None (occurrence: None)
  Receive Date: 20120222
  Receipt Date: 20120207
  Transmission Date: 20120608
  Serious: Yes (Other)
  Sender: FDA-Public Use
  Company Number: 2012-0288-SPO

PATIENT
  Age: 39 Year
  Sex: Female

DRUGS (1)
  1. ESTROGEL [Suspect]
     Indication: HOT FLUSH
     Dosage: 1.25 GRAMS DAILY, TRANSDERMAL
     Route: 062
     Dates: start: 20120101, end: 20120206

REACTIONS (3)
  - APPLICATION SITE IRRITATION [None]
  - CONVULSION [None]
  - CONDITION AGGRAVATED [None]
